FAERS Safety Report 8245483-4 (Version None)
Quarter: 2012Q1

REPORT INFORMATION
  Report Type: 
  Country: None (occurrence: None)
  Receive Date: 20120329
  Receipt Date: 20120321
  Transmission Date: 20120608
  Serious: Yes (Hospitalization, Other)
  Sender: FDA-Public Use
  Company Number: US-ASTRAZENECA-2012SE14845

PATIENT
  Age: 67 Year
  Sex: Male

DRUGS (1)
  1. SYMBICORT [Suspect]
     Route: 055

REACTIONS (5)
  - RESPIRATORY TRACT INFECTION [None]
  - DYSPNOEA [None]
  - PNEUMONIA [None]
  - INSOMNIA [None]
  - DRUG DOSE OMISSION [None]
